FAERS Safety Report 8255121-2 (Version None)
Quarter: 2012Q2

REPORT INFORMATION
  Report Type: 
  Country: None (occurrence: None)
  Receive Date: 20120403
  Receipt Date: 20120323
  Transmission Date: 20120825
  Serious: Yes (Death)
  Sender: FDA-Public Use
  Company Number: US-ALEXION-A201200444

PATIENT
  Sex: Female

DRUGS (15)
  1. ALBUTEROL [Concomitant]
     Indication: RESPIRATORY DISTRESS
     Route: 055
  2. LEVOPHED [Concomitant]
  3. MANNITOL [Concomitant]
  4. ATROPINE [Concomitant]
  5. INSULIN [Concomitant]
  6. MEROPENEM [Concomitant]
  7. FENTANYL [Concomitant]
     Indication: SEDATION
  8. SOLIRIS [Suspect]
     Indication: HAEMOLYTIC URAEMIC SYNDROME
     Dosage: 900 MG, SINGLE
     Route: 042
     Dates: start: 20120306, end: 20120306
  9. EPINEPHRINE [Concomitant]
  10. PHENYLEPHRINE HCL [Concomitant]
  11. PROPOFOL [Concomitant]
  12. FOSPHENYTOIN [Concomitant]
     Indication: CONVULSION
  13. PROTONIX [Concomitant]
     Indication: HAEMORRHAGE PROPHYLAXIS
  14. FENTANYL [Concomitant]
     Indication: CONVULSION
  15. FLUCONAZOLE [Concomitant]

REACTIONS (3)
  - CIRCULATORY COLLAPSE [None]
  - CONDITION AGGRAVATED [None]
  - CONVULSION [None]
